FAERS Safety Report 4838453-7 (Version None)
Quarter: 2005Q4

REPORT INFORMATION
  Report Type: 
  Country: None (occurrence: None)
  Receive Date: 20051123
  Receipt Date: 20051108
  Transmission Date: 20060501
  Serious: Yes (Hospitalization)
  Sender: FDA-Public Use
  Company Number: 2005PV003957

PATIENT
  Age: 71 Year
  Sex: Male
  Weight: 126.5536 kg

DRUGS (8)
  1. BYETTA [Suspect]
     Indication: DIABETES MELLITUS NON-INSULIN-DEPENDENT
     Dosage: 5 MG;BID;SC
     Route: 058
     Dates: start: 20050909, end: 20050916
  2. BYETTA [Suspect]
     Indication: DIABETES MELLITUS NON-INSULIN-DEPENDENT
     Dosage: 5 MG;BID;SC
     Route: 058
     Dates: start: 20051017, end: 20051107
  3. NOVOLIN N [Concomitant]
  4. ACTOS [Concomitant]
  5. HYZAAR [Concomitant]
  6. NORVASC [Concomitant]
  7. GLIPIZIDE [Concomitant]
  8. DOXAZOSIN [Concomitant]

REACTIONS (5)
  - BLOOD GLUCOSE INCREASED [None]
  - CHEST PAIN [None]
  - CONFUSIONAL STATE [None]
  - DEHYDRATION [None]
  - DIARRHOEA [None]
